FAERS Safety Report 6821585-1 (Version None)
Quarter: 2010Q3

REPORT INFORMATION
  Report Type: 
  Country: None (occurrence: None)
  Receive Date: 20100707
  Receipt Date: 20090401
  Transmission Date: 20110219
  Serious: No
  Sender: FDA-Public Use
  Company Number: US-PFIZER INC-2009195480

PATIENT
  Sex: Female
  Weight: 71.655 kg

DRUGS (2)
  1. ZOLOFT [Suspect]
     Indication: DEPRESSION
     Dosage: 75 MG, 1X/DAY
     Route: 048
     Dates: start: 20090101
  2. ZOLOFT [Suspect]
     Indication: ANXIETY

REACTIONS (2)
  - DRUG DISPENSING ERROR [None]
  - DRUG INEFFECTIVE [None]
